FAERS Safety Report 23403772 (Version 3)
Quarter: 2024Q3

REPORT INFORMATION
  Report Type: Report from Study
  Country: KR (occurrence: KR)
  Receive Date: 20240116
  Receipt Date: 20240917
  Transmission Date: 20241017
  Serious: Yes (Other)
  Sender: TAKEDA
  Company Number: KR-TAKEDA-2024TUS003638

PATIENT
  Age: 63 Year
  Sex: Male
  Weight: 51 kg

DRUGS (7)
  1. VEDOLIZUMAB [Suspect]
     Active Substance: VEDOLIZUMAB
     Indication: Crohn^s disease
     Dosage: 300 MILLIGRAM
     Route: 065
     Dates: start: 20230118
  2. AZATHIOPRINE [Concomitant]
     Active Substance: AZATHIOPRINE
     Dosage: 100 MILLIGRAM, QD
     Route: 048
     Dates: start: 20230118
  3. Feroba you sr [Concomitant]
     Indication: Supplementation therapy
     Dosage: 80 MILLIGRAM, QD
     Route: 048
     Dates: start: 20230118, end: 20230131
  4. PROBIOTICS NOS [Concomitant]
     Active Substance: PROBIOTICS NOS
     Indication: Constipation prophylaxis
     Dosage: 20 MILLIGRAM, BID
     Route: 048
     Dates: start: 20230427
  5. SYNATURA [Concomitant]
     Indication: Pneumonia
     Dosage: 15 MILLILITER, TID
     Route: 048
     Dates: start: 20231103, end: 20231110
  6. CODEINE PHOSPHATE [Concomitant]
     Active Substance: CODEINE PHOSPHATE
     Indication: Pneumonia
     Dosage: 20 MILLIGRAM, TID
     Route: 048
     Dates: start: 20231103, end: 20231110
  7. Cycin [Concomitant]
     Indication: Pneumonia
     Dosage: 500 MILLIGRAM, BID
     Route: 048
     Dates: start: 20231103, end: 20231110

REACTIONS (1)
  - Pneumonia [Recovered/Resolved]

NARRATIVE: CASE EVENT DATE: 20231103
